FAERS Safety Report 9466577 (Version 1)
Quarter: 2013Q3

REPORT INFORMATION
  Report Type: Spontaneous
  Country: US (occurrence: US)
  Receive Date: 20130820
  Receipt Date: 20130820
  Transmission Date: 20140515
  Serious: Yes (Hospitalization)
  Sender: FDA-Public Use
  Company Number: US-JNJFOC-20130806722

PATIENT
  Age: 16 Year
  Sex: Female

DRUGS (2)
  1. RISPERDAL CONSTA [Suspect]
     Indication: BIPOLAR I DISORDER
     Route: 030
  2. RISPERIDONE [Suspect]
     Indication: BIPOLAR I DISORDER
     Route: 048

REACTIONS (4)
  - Hirsutism [Recovered/Resolved]
  - Breast enlargement [Unknown]
  - Galactorrhoea [Recovered/Resolved]
  - Blood prolactin increased [Recovering/Resolving]
